FAERS Safety Report 21233000 (Version 1)
Quarter: 2022Q3

REPORT INFORMATION
  Report Type: Report from Study
  Country: BR (occurrence: BR)
  Receive Date: 20220819
  Receipt Date: 20220819
  Transmission Date: 20221027
  Serious: Yes (Other)
  Sender: FDA-Public Use
  Company Number: BR-GLAXOSMITHKLINE-BR2019AMR120049

PATIENT

DRUGS (8)
  1. BELIMUMAB [Suspect]
     Active Substance: BELIMUMAB
     Indication: Systemic lupus erythematosus
     Dosage: UNK
     Route: 042
     Dates: start: 20190205, end: 20190302
  2. BELIMUMAB [Suspect]
     Active Substance: BELIMUMAB
     Dosage: UNK
     Route: 042
     Dates: end: 20210518
  3. BELIMUMAB [Suspect]
     Active Substance: BELIMUMAB
     Dosage: UNK
     Route: 042
     Dates: end: 20210618
  4. BELIMUMAB [Suspect]
     Active Substance: BELIMUMAB
     Dosage: UNK
     Route: 042
     Dates: start: 20211201
  5. BELIMUMAB [Suspect]
     Active Substance: BELIMUMAB
     Dosage: UNK
     Route: 042
     Dates: start: 20220103
  6. BELIMUMAB [Suspect]
     Active Substance: BELIMUMAB
     Dosage: UNK
     Route: 042
     Dates: start: 20220225
  7. BELIMUMAB [Suspect]
     Active Substance: BELIMUMAB
     Dosage: UNK
     Route: 042
     Dates: start: 20220704
  8. BELIMUMAB [Suspect]
     Active Substance: BELIMUMAB
     Dosage: UNK
     Route: 042
     Dates: start: 20220602

REACTIONS (20)
  - Pneumonia [Not Recovered/Not Resolved]
  - Cataract [Not Recovered/Not Resolved]
  - Influenza [Not Recovered/Not Resolved]
  - Infection [Not Recovered/Not Resolved]
  - Chest pain [Unknown]
  - Back pain [Unknown]
  - Urinary tract infection [Unknown]
  - Weight decreased [Unknown]
  - Asthenia [Unknown]
  - Tremor [Unknown]
  - Product availability issue [Unknown]
  - Social problem [Not Recovered/Not Resolved]
  - Systolic hypertension [Recovered/Resolved]
  - Urinary tract infection [Recovered/Resolved]
  - Pyrexia [Unknown]
  - Visual impairment [Unknown]
  - Intentional product misuse [Unknown]
  - Inappropriate schedule of product administration [Unknown]
  - Inappropriate schedule of product administration [Unknown]
  - Urinary tract infection [Recovered/Resolved]

NARRATIVE: CASE EVENT DATE: 20210701
